FAERS Safety Report 4345852-9 (Version None)
Quarter: 2004Q2

REPORT INFORMATION
  Report Type: 
  Country: None (occurrence: None)
  Receive Date: 20040423
  Receipt Date: 20040423
  Transmission Date: 20050107
  Serious: Yes (Hospitalization)
  Sender: FDA-Public Use
  Company Number: None

PATIENT
  Age: 79 Year
  Sex: Female

DRUGS (1)
  1. LINIZOLID 600 MG [Suspect]
     Indication: MEDIASTINITIS
     Dosage: 600 MG BID ORAL
     Route: 048
     Dates: start: 20040310, end: 20040326

REACTIONS (1)
  - PANCYTOPENIA [None]
